FAERS Safety Report 7000227-9 (Version None)
Quarter: 2010Q3

REPORT INFORMATION
  Report Type: 
  Country: None (occurrence: None)
  Receive Date: 20100920
  Receipt Date: 20100412
  Transmission Date: 20110219
  Serious: Yes (Other)
  Sender: FDA-Public Use
  Company Number: US-ASTRAZENECA-2009UW14452

PATIENT
  Sex: Female

DRUGS (5)
  1. SEROQUEL [Suspect]
     Dosage: 100-200 MG
     Route: 048
     Dates: start: 20041207, end: 20080805
  2. TOPAMAX [Concomitant]
     Dates: start: 20041207
  3. PAXIL CR [Concomitant]
     Dates: start: 20041207
  4. APAP W/ CODEINE [Concomitant]
     Dosage: 300/30
     Dates: start: 20041207
  5. AMBIEN [Concomitant]
     Dates: start: 20080805

REACTIONS (3)
  - KETOACIDOSIS [None]
  - PANCREATITIS [None]
  - TYPE 2 DIABETES MELLITUS [None]
